FAERS Safety Report 9398290 (Version 1)
Quarter: 2013Q3

REPORT INFORMATION
  Report Type: Spontaneous
  Country: US (occurrence: US)
  Receive Date: 20130712
  Receipt Date: 20130712
  Transmission Date: 20140515
  Serious: No
  Sender: FDA-Public Use
  Company Number: US-009507513-1307USA006439

PATIENT
  Sex: Female

DRUGS (2)
  1. CLARITIN REDITABS [Suspect]
     Indication: URTICARIA
     Dosage: UNK, UNKNOWN
     Route: 048
  2. CLARITIN REDITABS [Suspect]
     Indication: MEDICAL OBSERVATION

REACTIONS (3)
  - Off label use [Unknown]
  - Product physical issue [Unknown]
  - Product packaging issue [Unknown]
